FAERS Safety Report 18973915 (Version 1)
Quarter: 2021Q1

REPORT INFORMATION
  Report Type: Spontaneous
  Country: US (occurrence: US)
  Receive Date: 20210305
  Receipt Date: 20210305
  Transmission Date: 20210420
  Serious: No
  Sender: FDA-Public Use
  Company Number: US-AMGEN-USASP2021030721

PATIENT
  Age: 83 Year
  Sex: Female

DRUGS (10)
  1. LORAZEPAM. [Concomitant]
     Active Substance: LORAZEPAM
     Dosage: 0.5 MILLIGRAM
  2. REPATHA [Suspect]
     Active Substance: EVOLOCUMAB
     Indication: BLOOD CHOLESTEROL INCREASED
  3. MIRTAZAPINE. [Concomitant]
     Active Substance: MIRTAZAPINE
     Dosage: 15 MILLIGRAM
  4. RAMIPRIL. [Concomitant]
     Active Substance: RAMIPRIL
     Dosage: 5 MILLIGRAM
  5. PROCTOSOL [Concomitant]
     Dosage: HC CRE 2.5 PERCENT
  6. REPATHA [Suspect]
     Active Substance: EVOLOCUMAB
     Indication: HYPERLIPIDAEMIA
     Dosage: 140 MILLIGRAM, Q2WK
     Route: 058
  7. CARVEDILOL. [Concomitant]
     Active Substance: CARVEDILOL
     Dosage: 6.25 MILLIGRAM
  8. LINZESS [Concomitant]
     Active Substance: LINACLOTIDE
     Dosage: 145 MICROGRAM
  9. DICYCLOMINE [Concomitant]
     Active Substance: DICYCLOMINE HYDROCHLORIDE
     Dosage: 10 MILLIGRAM
  10. LEVOTHYROXIN [Concomitant]
     Active Substance: LEVOTHYROXINE
     Dosage: 100 MICROGRAM

REACTIONS (3)
  - Vision blurred [Not Recovered/Not Resolved]
  - Fatigue [Not Recovered/Not Resolved]
  - Inappropriate schedule of product administration [Unknown]

NARRATIVE: CASE EVENT DATE: 202102
